FAERS Safety Report 9786249 (Version 1)
Quarter: 2013Q4

REPORT INFORMATION
  Report Type: Spontaneous
  Country: JP (occurrence: JP)
  Receive Date: 20131227
  Receipt Date: 20131227
  Transmission Date: 20140711
  Serious: Yes (Other)
  Sender: FDA-Public Use
  Company Number: JP-ELI_LILLY_AND_COMPANY-JP201312006870

PATIENT
  Age: 69 Year
  Sex: Male

DRUGS (2)
  1. GEMZAR [Suspect]
     Indication: GALLBLADDER ADENOSQUAMOUS CARCINOMA
     Dosage: 1150 MG, OTHER
     Route: 042
  2. ZOMETA [Concomitant]
     Indication: METASTASES TO BONE
     Route: 065

REACTIONS (1)
  - Emphysema [Unknown]
